FAERS Safety Report 6411416-6 (Version None)
Quarter: 2009Q4

REPORT INFORMATION
  Report Type: 
  Country: None (occurrence: None)
  Receive Date: 20091023
  Receipt Date: 20091015
  Transmission Date: 20100525
  Serious: Yes (Hospitalization, Other)
  Sender: FDA-Public Use
  Company Number: US-ELI_LILLY_AND_COMPANY-US200910002781

PATIENT
  Sex: Female

DRUGS (8)
  1. HUMULIN N [Suspect]
     Dosage: 50 U, EACH MORNING
  2. HUMULIN N [Suspect]
     Dosage: 100 U, EACH EVENING
  3. HUMULIN N [Suspect]
     Dosage: UNK, AS NEEDED
  4. CYMBALTA [Suspect]
  5. GLUCOTROL XL [Concomitant]
  6. PREVACID [Concomitant]
  7. DETROL LA [Concomitant]
  8. POTASSIUM CHLORIDE [Concomitant]

REACTIONS (8)
  - BLOOD GLUCOSE INCREASED [None]
  - DRUG INEFFECTIVE [None]
  - GLYCOSYLATED HAEMOGLOBIN INCREASED [None]
  - NAUSEA [None]
  - SKIN ULCER [None]
  - VOMITING [None]
  - WEIGHT DECREASED [None]
  - WOUND [None]
